FAERS Safety Report 22147583 (Version 1)
Quarter: 2023Q1

REPORT INFORMATION
  Report Type: Spontaneous
  Country: US (occurrence: None)
  Receive Date: 20230328
  Receipt Date: 20230328
  Transmission Date: 20230417
  Serious: Yes (Disabling)
  Sender: FDA-Public Use
  Company Number: None

PATIENT
  Age: 41 Year
  Sex: Male
  Weight: 68.4 kg

DRUGS (1)
  1. ARTIFICIAL TEARS LUBRICANT EYE DROPS (CARBOXYMETHYLCELLULOSE SODIUM) [Suspect]
     Active Substance: CARBOXYMETHYLCELLULOSE SODIUM
     Indication: Dry eye
     Dosage: OTHER QUANTITY : 3 DROP(S);?FREQUENCY : AS NEEDED;?
     Route: 047
     Dates: start: 20221220, end: 20230201

REACTIONS (10)
  - Recalled product administered [None]
  - Ocular hyperaemia [None]
  - Dry eye [None]
  - Eye discharge [None]
  - Instillation site erythema [None]
  - Job dissatisfaction [None]
  - Visual impairment [None]
  - Photophobia [None]
  - Emotional distress [None]
  - Economic problem [None]

NARRATIVE: CASE EVENT DATE: 20230207
